FAERS Safety Report 5527890-3 (Version None)
Quarter: 2007Q4

REPORT INFORMATION
  Report Type: 
  Country: None (occurrence: None)
  Receive Date: 20071126
  Receipt Date: 20071126
  Transmission Date: 20080405
  Serious: Yes (Hospitalization, Other)
  Sender: FDA-Public Use
  Company Number: None

PATIENT
  Age: 32 Year
  Weight: 62.5964 kg

DRUGS (1)
  1. CHANTIX [Suspect]
     Indication: SMOKING CESSATION THERAPY
     Dosage: ONE DAILY PO
     Route: 048
     Dates: start: 20070701, end: 20071021

REACTIONS (7)
  - AMNESIA [None]
  - DEPRESSION [None]
  - DISORIENTATION [None]
  - MENTAL DISORDER [None]
  - MIGRAINE [None]
  - NIGHTMARE [None]
  - SUICIDAL IDEATION [None]
